FAERS Safety Report 10113323 (Version 1)
Quarter: 2014Q2

REPORT INFORMATION
  Report Type: Spontaneous
  Country: US (occurrence: US)
  Receive Date: 20140425
  Receipt Date: 20140425
  Transmission Date: 20141212
  Serious: Yes (Other)
  Sender: FDA-Public Use
  Company Number: US-BAYER-2014-058243

PATIENT
  Age: 39 Year
  Sex: Female

DRUGS (1)
  1. MIDOL MENSTRUAL COMPLETE FORMULA [Suspect]
     Indication: DYSMENORRHOEA

REACTIONS (5)
  - Urinary retention [Recovered/Resolved]
  - Dysuria [Recovered/Resolved]
  - Burning sensation [Recovered/Resolved]
  - Pollakiuria [Recovered/Resolved]
  - Drug ineffective [None]
